FAERS Safety Report 7123127-2 (Version None)
Quarter: 2010Q4

REPORT INFORMATION
  Report Type: 
  Country: None (occurrence: None)
  Receive Date: 20101125
  Receipt Date: 20101118
  Transmission Date: 20110411
  Serious: Yes (Hospitalization)
  Sender: FDA-Public Use
  Company Number: US-BIOGENIDEC-2010BI041250

PATIENT
  Age: 51 Year
  Sex: Female

DRUGS (2)
  1. AVONEX [Suspect]
     Indication: MULTIPLE SCLEROSIS
     Route: 030
     Dates: start: 20030501, end: 20031101
  2. AVONEX [Suspect]
     Route: 030
     Dates: start: 20040718, end: 20090331

REACTIONS (2)
  - DRUG DELIVERY DEVICE IMPLANTATION [None]
  - MUSCLE SPASTICITY [None]
